FAERS Safety Report 5218045-0 (Version None)
Quarter: 2007Q1

REPORT INFORMATION
  Report Type: 
  Country: None (occurrence: None)
  Receive Date: 20061130
  Receipt Date: 20060901
  Transmission Date: 20070707
  Serious: Yes (Hospitalization)
  Sender: FDA-Public Use
  Company Number: US200609000947

PATIENT
  Age: 49 Year
  Sex: Male
  Weight: 97.5 kg

DRUGS (1)
  1. ZYPREXA [Suspect]
     Indication: ANXIETY
     Dosage: 25 MG, ORAL
     Route: 048

REACTIONS (8)
  - BLOOD CHOLESTEROL ABNORMAL [None]
  - BLOOD TRIGLYCERIDES INCREASED [None]
  - HYPERPHAGIA [None]
  - HYPERTENSION [None]
  - HYPOGLYCAEMIA [None]
  - PANCREATITIS [None]
  - PRESCRIBED OVERDOSE [None]
  - VISION BLURRED [None]
